FAERS Safety Report 18385452 (Version 3)
Quarter: 2021Q4

REPORT INFORMATION
  Report Type: Report from Study
  Country: US (occurrence: US)
  Receive Date: 20201015
  Receipt Date: 20211021
  Transmission Date: 20220303
  Serious: Yes (Other)
  Sender: FDA-Public Use
  Company Number: US-SHIRE-US202033493

PATIENT
  Age: 65 Year
  Sex: Male

DRUGS (2)
  1. VON WILLEBRAND FACTOR HUMAN [Suspect]
     Active Substance: VON WILLEBRAND FACTOR HUMAN
     Indication: Product used for unknown indication
     Dosage: 705 INTERNATIONAL UNIT
     Route: 042
  2. VON WILLEBRAND FACTOR HUMAN [Suspect]
     Active Substance: VON WILLEBRAND FACTOR HUMAN
     Dosage: 2400 INTERNATIONAL UNIT
     Route: 065

REACTIONS (3)
  - Pneumonia [Unknown]
  - Burning sensation [Unknown]
  - Dizziness [Unknown]

NARRATIVE: CASE EVENT DATE: 20201006
